FAERS Safety Report 9292730 (Version 1)
Quarter: 2013Q2

REPORT INFORMATION
  Report Type: Spontaneous
  Country: US (occurrence: None)
  Receive Date: 20130515
  Receipt Date: 20130515
  Transmission Date: 20140414
  Serious: Yes (Other)
  Sender: FDA-Public Use
  Company Number: None

PATIENT
  Sex: Female

DRUGS (1)
  1. TRADJENTA [Suspect]
     Indication: DIABETES MELLITUS
     Dosage: 1 PILL
     Route: 048
     Dates: start: 201204, end: 201304

REACTIONS (9)
  - Dyspnoea [None]
  - Chest discomfort [None]
  - Anxiety [None]
  - Mood swings [None]
  - Pallor [None]
  - Rhinorrhoea [None]
  - Oropharyngeal pain [None]
  - Alopecia [None]
  - Vision blurred [None]
